FAERS Safety Report 12421894 (Version 2)
Quarter: 2016Q3

REPORT INFORMATION
  Report Type: Spontaneous
  Country: IL (occurrence: IL)
  Receive Date: 20160531
  Receipt Date: 20160705
  Transmission Date: 20161109
  Serious: Yes (Hospitalization, Other)
  Sender: FDA-Public Use
  Company Number: IL-PFIZER INC-2016276992

PATIENT
  Age: 65 Year
  Sex: Male

DRUGS (3)
  1. SILDENAFIL CITRATE. [Suspect]
     Active Substance: SILDENAFIL CITRATE
     Indication: ERECTILE DYSFUNCTION
     Dosage: UNK (HALF A TABLET EACH TIME, 2-3 TIMES A WEEK)
  2. CEFUROXIME. [Suspect]
     Active Substance: CEFUROXIME
     Indication: PNEUMONIA
     Dosage: UNK
  3. ROXITHROMYCIN [Suspect]
     Active Substance: ROXITHROMYCIN
     Indication: PNEUMONIA
     Dosage: UNK

REACTIONS (3)
  - Extra dose administered [Unknown]
  - Product counterfeit [Unknown]
  - Hepatotoxicity [Recovered/Resolved]
